FAERS Safety Report 6305975-1 (Version None)
Quarter: 2009Q3

REPORT INFORMATION
  Report Type: 
  Country: None (occurrence: None)
  Receive Date: 20090812
  Receipt Date: 20090731
  Transmission Date: 20100115
  Serious: Yes (Hospitalization, Other)
  Sender: FDA-Public Use
  Company Number: JP-PFIZER INC-2009244553

PATIENT
  Age: 5 Year

DRUGS (2)
  1. GENOTROPIN [Suspect]
     Indication: BODY HEIGHT BELOW NORMAL
     Dosage: 0.5 MG, 6 TIMES/WEEK
     Route: 058
     Dates: start: 20080811, end: 20090122
  2. GENOTROPIN [Suspect]
     Dosage: 0.5 MG, 6 TIMES/WEEK
     Route: 058
     Dates: start: 20090411

REACTIONS (1)
  - TONSILLAR HYPERTROPHY [None]
